FAERS Safety Report 15716956 (Version 5)
Quarter: 2019Q2

REPORT INFORMATION
  Report Type: Spontaneous
  Country: US (occurrence: US)
  Receive Date: 20181213
  Receipt Date: 20190625
  Transmission Date: 20190711
  Serious: No
  Sender: FDA-Public Use
  Company Number: US-PFIZER INC-2018252987

PATIENT
  Age: 51 Year
  Sex: Female

DRUGS (2)
  1. XELJANZ XR [Suspect]
     Active Substance: TOFACITINIB CITRATE
     Dosage: 44 MG, 1X/DAY (11 MG FOUR TABLETS ONCE DAILY)
     Route: 048
  2. XELJANZ XR [Suspect]
     Active Substance: TOFACITINIB CITRATE
     Dosage: 11 MG, UNK

REACTIONS (4)
  - Malaise [Unknown]
  - Mobility decreased [Unknown]
  - Pain [Unknown]
  - Prescribed overdose [Unknown]
